FAERS Safety Report 7156517-2 (Version None)
Quarter: 2010Q4

REPORT INFORMATION
  Report Type: 
  Country: None (occurrence: None)
  Receive Date: 20101214
  Receipt Date: 20100217
  Transmission Date: 20110411
  Serious: No
  Sender: FDA-Public Use
  Company Number: US-ASTRAZENECA-2009SE27445

PATIENT
  Age: 30542 Day
  Sex: Female
  Weight: 71.2 kg

DRUGS (6)
  1. CRESTOR [Suspect]
     Indication: BLOOD CHOLESTEROL INCREASED
     Route: 048
     Dates: start: 20090909
  2. CRESTOR [Suspect]
     Indication: CORONARY ARTERY DISEASE
     Route: 048
     Dates: start: 20090909
  3. FUROSEMIDE [Concomitant]
  4. AMLODIPINE [Concomitant]
     Indication: BLOOD PRESSURE
  5. DETROL [Concomitant]
     Indication: BLADDER DISORDER
  6. AGGRENOX [Concomitant]

REACTIONS (5)
  - BRONCHITIS [None]
  - COUGH [None]
  - PNEUMONIA [None]
  - SINUS HEADACHE [None]
  - SINUSITIS [None]
